FAERS Safety Report 11743558 (Version 2)
Quarter: 2018Q4

REPORT INFORMATION
  Report Type: Report from Study
  Country: BE (occurrence: BE)
  Receive Date: 20151116
  Receipt Date: 20181129
  Transmission Date: 20190204
  Serious: Yes (Hospitalization)
  Sender: FDA-Public Use
  Company Number: PHHY2015BE066612

PATIENT
  Age: 51 Year
  Sex: Female
  Weight: 68 kg

DRUGS (7)
  1. NEURONTIN [Concomitant]
     Active Substance: GABAPENTIN
     Indication: NEURALGIA
     Dosage: UNK, TID
     Route: 065
     Dates: start: 201409
  2. RIVOTRIL [Concomitant]
     Active Substance: CLONAZEPAM
     Indication: NEURALGIA
     Dosage: 10 DSN
     Route: 065
     Dates: start: 201409
  3. AUBAGIO [Suspect]
     Active Substance: TERIFLUNOMIDE
     Indication: MULTIPLE SCLEROSIS
     Dosage: 14 MG, QD
     Route: 048
     Dates: start: 20140717
  4. CORTISONE [Concomitant]
     Active Substance: CORTISONE\HYDROCORTISONE
     Indication: CARPAL TUNNEL SYNDROME
     Dosage: UNK
     Route: 065
     Dates: start: 201504, end: 201504
  5. AUBAGIO [Suspect]
     Active Substance: TERIFLUNOMIDE
     Dosage: UNK, QD
     Route: 065
     Dates: start: 201409
  6. GILENYA [Suspect]
     Active Substance: FINGOLIMOD HYDROCHLORIDE
     Indication: MULTIPLE SCLEROSIS
     Dosage: UNK, QD
     Route: 048
  7. EUTHYROX [Concomitant]
     Active Substance: LEVOTHYROXINE SODIUM
     Indication: THYROID DISORDER
     Dosage: 75 UG, QD
     Route: 065
     Dates: start: 201405

REACTIONS (2)
  - Carpal tunnel syndrome [Recovered/Resolved]
  - Paraesthesia [Recovered/Resolved]

NARRATIVE: CASE EVENT DATE: 20150206
